FAERS Safety Report 7980615-4 (Version None)
Quarter: 2011Q4

REPORT INFORMATION
  Report Type: 
  Country: None (occurrence: None)
  Receive Date: 20111214
  Receipt Date: 20111209
  Transmission Date: 20120403
  Serious: Yes (Other)
  Sender: FDA-Public Use
  Company Number: JP-CEPHALON-2009029254

PATIENT
  Sex: Male

DRUGS (2)
  1. MODAFANIL [Suspect]
     Indication: SLEEP APNOEA SYNDROME
     Route: 048
     Dates: start: 20091015, end: 20091110
  2. MODAFANIL [Suspect]
     Indication: SOMNOLENCE

REACTIONS (3)
  - ENTEROCOLITIS [None]
  - TRANSIENT ISCHAEMIC ATTACK [None]
  - ANXIETY [None]
